FAERS Safety Report 20769682 (Version 3)
Quarter: 2022Q2

REPORT INFORMATION
  Report Type: Report from Study
  Country: US (occurrence: US)
  Receive Date: 20220429
  Receipt Date: 20220602
  Transmission Date: 20220721
  Serious: Yes (Hospitalization)
  Sender: FDA-Public Use
  Company Number: US-TAKEDA-2022TUS010624

PATIENT
  Sex: Male

DRUGS (6)
  1. MARIBAVIR [Suspect]
     Active Substance: MARIBAVIR
     Indication: Cytomegalovirus infection
     Dosage: 200 MILLIGRAM, BID
     Route: 048
     Dates: start: 20220131
  2. MARIBAVIR [Suspect]
     Active Substance: MARIBAVIR
     Dosage: 200 MILLIGRAM, BID
     Route: 048
     Dates: start: 20220131
  3. MARIBAVIR [Suspect]
     Active Substance: MARIBAVIR
     Dosage: 200 MILLIGRAM, BID
     Route: 048
     Dates: start: 20220121
  4. GANCICLOVIR [Suspect]
     Active Substance: GANCICLOVIR
     Indication: Product used for unknown indication
     Route: 065
  5. ENVARSUS XR [Concomitant]
     Active Substance: TACROLIMUS
     Indication: Product used for unknown indication
     Dosage: 8 MILLIGRAM, QD
     Route: 048
  6. ENVARSUS XR [Concomitant]
     Active Substance: TACROLIMUS
     Dosage: 7 MILLIGRAM, QD
     Route: 048

REACTIONS (5)
  - Viral load increased [Unknown]
  - Blood creatinine abnormal [Unknown]
  - Taste disorder [Unknown]
  - Peripheral swelling [Recovering/Resolving]
  - Drug ineffective [Unknown]
